FAERS Safety Report 4716797-7 (Version None)
Quarter: 2005Q3

REPORT INFORMATION
  Report Type: 
  Country: None (occurrence: None)
  Receive Date: 20050714
  Receipt Date: 20050705
  Transmission Date: 20060218
  Serious: Yes (Other)
  Sender: FDA-Public Use
  Company Number: 2005098077

PATIENT
  Age: 68 Year
  Sex: Female

DRUGS (4)
  1. SORTIS (ATORVASTATIN) [Suspect]
     Indication: ILL-DEFINED DISORDER
     Dosage: 20 MG (20 MG, 1 IN 1 D), ORAL
     Route: 047
     Dates: start: 20050502, end: 20050705
  2. MARCUMAR [Concomitant]
  3. ENALAPRIL MALEATE [Concomitant]
  4. NIFEDIPINE [Concomitant]

REACTIONS (7)
  - ASTHENIA [None]
  - BLOOD CREATINE PHOSPHOKINASE INCREASED [None]
  - CARDIOVASCULAR DISORDER [None]
  - DYSSTASIA [None]
  - MYALGIA [None]
  - REFUSAL OF TREATMENT BY PATIENT [None]
  - TRANSIENT ISCHAEMIC ATTACK [None]
